FAERS Safety Report 10048084 (Version 1)
Quarter: 2014Q1

REPORT INFORMATION
  Report Type: Spontaneous
  Country: US (occurrence: US)
  Receive Date: 20140331
  Receipt Date: 20140331
  Transmission Date: 20141002
  Serious: No
  Sender: FDA-Public Use
  Company Number: US-PFIZER INC-2014086631

PATIENT
  Age: 69 Year
  Sex: Male
  Weight: 90.7 kg

DRUGS (2)
  1. VIAGRA [Suspect]
     Indication: ERECTILE DYSFUNCTION
     Dosage: 100 MG, AS NEEDED
     Dates: end: 201410
  2. DOXAZOSIN [Concomitant]
     Indication: HYPERTENSION
     Dosage: 8 MG, 1X/DAY

REACTIONS (1)
  - Drug ineffective [Unknown]
